FAERS Safety Report 7052787-X (Version None)
Quarter: 2010Q4

REPORT INFORMATION
  Report Type: 
  Country: None (occurrence: None)
  Receive Date: 20101014
  Receipt Date: 20101006
  Transmission Date: 20110411
  Serious: Yes (Other)
  Sender: FDA-Public Use
  Company Number: 2010SP053641

PATIENT
  Age: 81 Year
  Sex: Male

DRUGS (5)
  1. DULERA TABLET [Suspect]
     Indication: ASTHMA
     Dosage: INH
     Route: 055
  2. ASPIRIN [Concomitant]
  3. LIPITOR [Concomitant]
  4. LOSARCAN/HCT [Concomitant]
  5. PREVACID [Concomitant]

REACTIONS (2)
  - LIP SWELLING [None]
  - RASH [None]
